FAERS Safety Report 14870810 (Version 1)
Quarter: 2018Q2

REPORT INFORMATION
  Report Type: Spontaneous
  Country: US (occurrence: US)
  Receive Date: 20180509
  Receipt Date: 20180509
  Transmission Date: 20180711
  Serious: Yes (Other)
  Sender: FDA-Public Use
  Company Number: US-TEVA-2018-US-890343

PATIENT
  Age: 40 Year
  Sex: Female

DRUGS (1)
  1. PHENTERMINE. [Suspect]
     Active Substance: PHENTERMINE
     Dosage: 37.5 MILLIGRAM DAILY; HAD BEEN RECEIVING PHENTERMINE FOR 2 YEARS.
     Route: 065

REACTIONS (1)
  - Renal disorder [Unknown]
